FAERS Safety Report 14776035 (Version 2)
Quarter: 2018Q2

REPORT INFORMATION
  Report Type: Spontaneous
  Country: BR (occurrence: BR)
  Receive Date: 20180418
  Receipt Date: 20180424
  Transmission Date: 20180711
  Serious: Yes (Hospitalization, Other)
  Sender: FDA-Public Use
  Company Number: BR-DSJP-DSU-2018-114754

PATIENT

DRUGS (2)
  1. OLMETEC HCT 20/12.5 [Suspect]
     Active Substance: HYDROCHLOROTHIAZIDE\OLMESARTAN MEDOXOMIL
     Indication: HYPERTENSION
     Dosage: 1 DF (20/12.5 MG), QD
     Route: 065
  2. VENALOT                            /00843801/ [Concomitant]
     Active Substance: COUMARIN\TROXERUTIN
     Indication: CARDIOVASCULAR DISORDER
     Dosage: UNK
     Route: 065

REACTIONS (8)
  - Osteoporosis [Not Recovered/Not Resolved]
  - Retinal detachment [Recovered/Resolved]
  - Eye haemorrhage [Recovered/Resolved]
  - Eye disorder [Not Recovered/Not Resolved]
  - Headache [Recovered/Resolved]
  - Blindness unilateral [Not Recovered/Not Resolved]
  - Ocular discomfort [Recovered/Resolved]
  - Osteopenia [Not Recovered/Not Resolved]

NARRATIVE: CASE EVENT DATE: 2009
